FAERS Safety Report 9577871 (Version 1)
Quarter: 2013Q4

REPORT INFORMATION
  Report Type: Spontaneous
  Country: US (occurrence: US)
  Receive Date: 20131001
  Receipt Date: 20131001
  Transmission Date: 20140711
  Serious: No
  Sender: FDA-Public Use
  Company Number: US-AMGEN-USASP2013010142

PATIENT
  Age: 41 Year
  Sex: Female
  Weight: 56.69 kg

DRUGS (10)
  1. ENBREL [Suspect]
     Indication: PRODUCT USED FOR UNKNOWN INDICATION
     Dosage: 50 MG, QWK
     Route: 058
     Dates: start: 201211
  2. BENADRYL                           /00000402/ [Concomitant]
     Dosage: 25 MG, UNK
  3. DOVONEX [Concomitant]
     Dosage: 0.005 %, UNK
  4. DOVONEX [Concomitant]
     Dosage: 0.005 %, UNK
  5. DIPROLENE [Concomitant]
     Dosage: 0.05%, UNK
  6. CITALOPRAM [Concomitant]
     Dosage: 20 MG, UNK
  7. MULTIVITAMINS, PLAIN [Concomitant]
     Dosage: UNK
  8. CALCIUM CARBONATE W/MAGNESIUM [Concomitant]
     Dosage: UNK
  9. VITAMIN D3 [Concomitant]
     Dosage: 5000 UNIT, UNK
  10. VITAMIN E                          /00110501/ [Concomitant]
     Dosage: 1000 UNIT, UNK

REACTIONS (5)
  - Injection site reaction [Unknown]
  - Injection site erythema [Unknown]
  - Injection site swelling [Unknown]
  - Injection site warmth [Unknown]
  - Injection site pruritus [Unknown]
